FAERS Safety Report 4344334-8 (Version None)
Quarter: 2004Q2

REPORT INFORMATION
  Report Type: 
  Country: None (occurrence: None)
  Receive Date: 20040419
  Receipt Date: 20040407
  Transmission Date: 20050107
  Serious: Yes (Hospitalization)
  Sender: FDA-Public Use
  Company Number: 2004208367FR

PATIENT
  Age: 1 Day
  Sex: Female
  Weight: 1.9 kg

DRUGS (5)
  1. XANAX [Suspect]
     Dosage: 1.5 MG/DAY, ORAL
     Route: 048
  2. CLONAZEPAM [Suspect]
     Dosage: 2 MG/DAY, ORAL
     Route: 048
  3. SUBUTEX [Suspect]
     Dosage: 20 MG/DAY, ORAL
  4. AMITRIPTYLINE HCL [Concomitant]
  5. FLUOXETINE [Concomitant]

REACTIONS (6)
  - DRUG EXPOSURE DURING PREGNANCY [None]
  - DRUG WITHDRAWAL SYNDROME NEONATAL [None]
  - FOETAL GROWTH RETARDATION [None]
  - HYPERTONIA NEONATAL [None]
  - NEONATAL DISORDER [None]
  - TREMOR NEONATAL [None]
